FAERS Safety Report 8034251-4 (Version None)
Quarter: 2012Q1

REPORT INFORMATION
  Report Type: 
  Country: None (occurrence: None)
  Receive Date: 20120110
  Receipt Date: 20120104
  Transmission Date: 20120608
  Serious: Yes (Other)
  Sender: FDA-Public Use
  Company Number: PHHY2011BR89335

PATIENT
  Sex: Female

DRUGS (3)
  1. ENALAPRIL MALEATE [Concomitant]
  2. DIOVAN [Suspect]
     Dosage: 1 DF(320 MG), DAILY
  3. DIOVAN [Suspect]
     Indication: HYPERTENSION
     Dosage: 1 DF(160 MG), DAILY

REACTIONS (4)
  - BLOOD PRESSURE FLUCTUATION [None]
  - FEELING ABNORMAL [None]
  - CARDIAC MURMUR [None]
  - HEADACHE [None]
